FAERS Safety Report 25716989 (Version 1)
Quarter: 2025Q3

REPORT INFORMATION
  Report Type: Spontaneous
  Country: US (occurrence: US)
  Receive Date: 20250822
  Receipt Date: 20250822
  Transmission Date: 20251021
  Serious: No
  Sender: SANOFI AVENTIS
  Company Number: US-SA-2025SA174475

PATIENT
  Age: 4 Week
  Sex: Male
  Weight: 3.18 kg

DRUGS (3)
  1. DUPILUMAB [Suspect]
     Active Substance: DUPILUMAB
     Indication: Dermatitis atopic
     Dosage: 300 MG, QOW
     Route: 063
     Dates: start: 20210120
  2. DUPILUMAB [Suspect]
     Active Substance: DUPILUMAB
     Route: 063
     Dates: start: 202409, end: 202409
  3. DUPILUMAB [Suspect]
     Active Substance: DUPILUMAB
     Dosage: 300 MG, QOW
     Route: 063
     Dates: start: 2024

REACTIONS (3)
  - Respiratory disorder neonatal [Recovering/Resolving]
  - Exposure via breast milk [Recovering/Resolving]
  - Maternal exposure during pregnancy [Recovering/Resolving]

NARRATIVE: CASE EVENT DATE: 20241101
